FAERS Safety Report 6746496-1 (Version None)
Quarter: 2010Q2

REPORT INFORMATION
  Report Type: 
  Country: None (occurrence: None)
  Receive Date: 20100528
  Receipt Date: 20100120
  Transmission Date: 20101027
  Serious: No
  Sender: FDA-Public Use
  Company Number: US-ASTRAZENECA-2010SE03243

PATIENT
  Sex: Female

DRUGS (3)
  1. PRILOSEC [Suspect]
     Route: 048
     Dates: start: 20091216
  2. VITAMINS [Concomitant]
     Dosage: UNKNOWN
  3. PENICILLIN [Concomitant]
     Indication: DRUG USE FOR UNKNOWN INDICATION

REACTIONS (1)
  - DYSGEUSIA [None]
